FAERS Safety Report 7287889-6 (Version None)
Quarter: 2011Q1

REPORT INFORMATION
  Report Type: 
  Country: None (occurrence: None)
  Receive Date: 20110208
  Receipt Date: 20110208
  Transmission Date: 20110831
  Serious: Yes (Hospitalization)
  Sender: FDA-Public Use
  Company Number: None

PATIENT
  Age: 53 Year
  Sex: Male
  Weight: 79 kg

DRUGS (2)
  1. LEVOFLOXACIN [Suspect]
     Indication: HYPERGLYCAEMIA
     Dosage: 750 MG DAILY PO
     Route: 048
     Dates: start: 20101201, end: 20110131
  2. LANTUS [Suspect]
     Indication: HYPERGLYCAEMIA
     Dosage: 15 UNITS EVENING SQ
     Dates: start: 20101201, end: 20110131

REACTIONS (3)
  - PYREXIA [None]
  - ERYTHEMA [None]
  - RASH [None]
